FAERS Safety Report 7731936-1 (Version None)
Quarter: 2011Q3

REPORT INFORMATION
  Report Type: 
  Country: None (occurrence: None)
  Receive Date: 20110906
  Receipt Date: 20110715
  Transmission Date: 20111222
  Serious: No
  Sender: FDA-Public Use
  Company Number: US-AMGEN-USASP2011036154

PATIENT
  Sex: Female

DRUGS (4)
  1. PROLIA [Suspect]
     Indication: PRODUCT USED FOR UNKNOWN INDICATION
     Dosage: UNK
     Dates: start: 20110501
  2. CALCIUM CARBONATE [Concomitant]
     Dosage: 500 MG, QD
     Route: 048
  3. MULTI-VITAMINS [Concomitant]
     Dosage: UNK UNK, QD
     Route: 048
  4. GLUCOSAMINE CHONDROITIN [Concomitant]
     Dosage: UNK
     Route: 048

REACTIONS (4)
  - CALCIUM DEFICIENCY [None]
  - TENDON PAIN [None]
  - BONE DISORDER [None]
  - PAIN [None]
